FAERS Safety Report 12338862 (Version 4)
Quarter: 2017Q1

REPORT INFORMATION
  Report Type: Report from Study
  Country: US (occurrence: US)
  Receive Date: 20160505
  Receipt Date: 20170328
  Transmission Date: 20170428
  Serious: Yes (Hospitalization)
  Sender: FDA-Public Use
  Company Number: US-ACTELION-A-US2016-131810

PATIENT
  Age: 60 Year
  Sex: Female

DRUGS (21)
  1. SPIRONOLACTONE. [Concomitant]
     Active Substance: SPIRONOLACTONE
  2. CIPROFLOXACIN. [Concomitant]
     Active Substance: CIPROFLOXACIN
  3. OPSUMIT [Suspect]
     Active Substance: MACITENTAN
     Indication: PULMONARY ARTERIAL HYPERTENSION
     Dosage: 10 MG, QD
     Route: 048
  4. THERATEARS [Concomitant]
     Active Substance: CARBOXYMETHYLCELLULOSE SODIUM
  5. CENTRUM [Concomitant]
     Active Substance: VITAMINS
  6. NADOLOL. [Concomitant]
     Active Substance: NADOLOL
  7. FUROSEMIDE. [Concomitant]
     Active Substance: FUROSEMIDE
  8. ESCITALOPRAM [Concomitant]
     Active Substance: ESCITALOPRAM OXALATE
  9. HYDROXYCHLOROQUINE SULFATE. [Concomitant]
     Active Substance: HYDROXYCHLOROQUINE SULFATE
  10. ZOLPIDEM TARTATE [Concomitant]
     Active Substance: ZOLPIDEM TARTRATE
  11. AMBIEN [Concomitant]
     Active Substance: ZOLPIDEM TARTRATE
  12. IRON [Concomitant]
     Active Substance: IRON
  13. OXYCONTIN [Concomitant]
     Active Substance: OXYCODONE HYDROCHLORIDE
  14. BUMETANIDE. [Concomitant]
     Active Substance: BUMETANIDE
  15. MELATONIN [Concomitant]
     Active Substance: MELATONIN
  16. DULERA [Concomitant]
     Active Substance: FORMOTEROL FUMARATE DIHYDRATE\MOMETASONE FUROATE
  17. LEXAPRO [Concomitant]
     Active Substance: ESCITALOPRAM OXALATE
  18. LISINOPRIL. [Concomitant]
     Active Substance: LISINOPRIL
  19. PRILOSEC [Concomitant]
     Active Substance: OMEPRAZOLE MAGNESIUM
  20. NORCO [Concomitant]
     Active Substance: ACETAMINOPHEN\HYDROCODONE BITARTRATE
  21. ONDANSETRON [Concomitant]
     Active Substance: ONDANSETRON

REACTIONS (7)
  - Pneumonia [Recovered/Resolved]
  - Confusional state [Unknown]
  - Fluid overload [Recovered/Resolved]
  - Sinus congestion [Unknown]
  - Dyspnoea [Unknown]
  - Systemic lupus erythematosus [Unknown]
  - Multiple organ dysfunction syndrome [Recovering/Resolving]
